FAERS Safety Report 24566763 (Version 1)
Quarter: 2024Q4

REPORT INFORMATION
  Report Type: Spontaneous
  Country: US (occurrence: None)
  Receive Date: 20241030
  Receipt Date: 20241030
  Transmission Date: 20250115
  Serious: No
  Sender: Public
  Company Number: None

PATIENT
  Age: 66 Year
  Sex: Female
  Weight: 108.86 kg

DRUGS (10)
  1. SERTRALINE HYDROCHLORIDE [Suspect]
     Active Substance: SERTRALINE HYDROCHLORIDE
     Indication: Depression
     Dosage: ONCE A DAY TAKEN BY MOUTH ?
     Route: 048
     Dates: start: 20241011, end: 20241028
  2. ADVAIR HFA [Concomitant]
  3. SPIRIVA [Concomitant]
  4. FUXOFENADINE [Concomitant]
  5. HCTZ [Concomitant]
  6. LOSARTAN [Concomitant]
  7. ALBUTEROL [Concomitant]
  8. UBRELVY [Concomitant]
  9. TYLENOL [Concomitant]
     Active Substance: ACETAMINOPHEN
  10. ADVIL [Concomitant]
     Active Substance: IBUPROFEN

REACTIONS (2)
  - Myalgia [None]
  - Arthralgia [None]

NARRATIVE: CASE EVENT DATE: 20241025
